FAERS Safety Report 22212672 (Version 2)
Quarter: 2023Q2

REPORT INFORMATION
  Report Type: Spontaneous
  Country: US (occurrence: US)
  Receive Date: 20230414
  Receipt Date: 20230526
  Transmission Date: 20230722
  Serious: Yes (Other)
  Sender: FDA-Public Use
  Company Number: US-MYLANLABS-2023M1038458

PATIENT
  Age: 3 Decade
  Sex: Male

DRUGS (10)
  1. PREDNISONE [Suspect]
     Active Substance: PREDNISONE
     Indication: Deafness
     Dosage: 10 MILLIGRAM, QD
     Route: 065
     Dates: start: 20210628
  2. PREDNISONE [Suspect]
     Active Substance: PREDNISONE
     Dosage: 60 MILLIGRAM, QD
     Route: 065
  3. PREDNISONE [Suspect]
     Active Substance: PREDNISONE
     Dosage: 50 MILLIGRAM, QD
     Route: 065
  4. PREDNISONE [Suspect]
     Active Substance: PREDNISONE
     Dosage: 40 MILLIGRAM, QD
     Route: 065
  5. PREDNISONE [Suspect]
     Active Substance: PREDNISONE
     Dosage: 30 MILLIGRAM, QD
     Route: 065
  6. PREDNISONE [Suspect]
     Active Substance: PREDNISONE
     Dosage: 20 MILLIGRAM, QD
     Route: 065
  7. CETIRIZINE [Suspect]
     Active Substance: CETIRIZINE HYDROCHLORIDE
     Indication: Deafness
     Dosage: 10 MILLIGRAM, QD
     Route: 048
     Dates: start: 20210525, end: 20210608
  8. CETIRIZINE [Suspect]
     Active Substance: CETIRIZINE HYDROCHLORIDE
     Dosage: UNK
     Route: 048
  9. PSEUDOEPHEDRINE [Suspect]
     Active Substance: PSEUDOEPHEDRINE
     Indication: Deafness
     Dosage: UNK
     Route: 065
  10. FLUTICASONE PROPIONATE [Suspect]
     Active Substance: FLUTICASONE PROPIONATE
     Indication: Deafness
     Dosage: UNK
     Route: 045

REACTIONS (1)
  - Drug ineffective [Unknown]
